FAERS Safety Report 6884511-5 (Version None)
Quarter: 2010Q3

REPORT INFORMATION
  Report Type: 
  Country: None (occurrence: None)
  Receive Date: 20100729
  Receipt Date: 20070712
  Transmission Date: 20110219
  Serious: Yes (Hospitalization)
  Sender: FDA-Public Use
  Company Number: US-PFIZER INC-2007058276

PATIENT
  Sex: Male

DRUGS (10)
  1. CELEBREX [Suspect]
     Indication: ARTHRITIS
     Route: 048
     Dates: start: 20010301, end: 20040901
  2. CELEBREX [Suspect]
     Indication: PAIN
  3. IBUPROFEN TABLETS [Concomitant]
  4. NAPROXEN [Concomitant]
  5. ACETYLSALICYLIC ACID SRT [Concomitant]
  6. CODEINE [Concomitant]
  7. DARVOCET [Concomitant]
  8. MORPHINE [Concomitant]
  9. ACETAMINOPHEN [Concomitant]
  10. VIOXX [Concomitant]

REACTIONS (1)
  - MYOCARDIAL INFARCTION [None]
